FAERS Safety Report 13640180 (Version 1)
Quarter: 2017Q2

REPORT INFORMATION
  Report Type: Other
  Country: GB (occurrence: FR)
  Receive Date: 20170609
  Receipt Date: 20170609
  Transmission Date: 20170830
  Serious: Yes (Other)
  Sender: FDA-Public Use
  Company Number: FR-INTERNATIONAL MEDICATION SYSTEMS, LIMITED-2021783

PATIENT
  Age: 38 Year
  Sex: Female

DRUGS (3)
  1. CODEINE SULFATE. [Suspect]
     Active Substance: CODEINE SULFATE
  2. MORPHINE [Suspect]
     Active Substance: MORPHINE
  3. DIHYDROCODEINE [Concomitant]
     Active Substance: DIHYDROCODEINE

REACTIONS (4)
  - Dermatitis contact [Unknown]
  - Drug cross-reactivity [Unknown]
  - Sensitisation [Unknown]
  - Occupational exposure to product [Unknown]
